FAERS Safety Report 20380513 (Version 3)
Quarter: 2022Q1

REPORT INFORMATION
  Report Type: Report from Study
  Country: MX (occurrence: MX)
  Receive Date: 20220127
  Receipt Date: 20220206
  Transmission Date: 20220423
  Serious: Yes (Other)
  Sender: FDA-Public Use
  Company Number: MX-NOVARTISPH-NVSC2022MX016242

PATIENT
  Age: 79 Year
  Sex: Male
  Weight: 58 kg

DRUGS (3)
  1. HYDROCHLOROTHIAZIDE\VALSARTAN [Suspect]
     Active Substance: HYDROCHLOROTHIAZIDE\VALSARTAN
     Indication: Hypertension
     Dosage: 1 DOSAGE FORM, QD (160/12.5 MG)
     Route: 048
     Dates: start: 19850901
  2. ALPRAZOLAM [Concomitant]
     Active Substance: ALPRAZOLAM
     Indication: Somnolence
     Dosage: 1 DOSAGE FORM, QD (AT NIGHT) (3 YEARS AGO)
     Route: 048
  3. DORMICUM [Concomitant]
     Indication: Somnolence
     Dosage: 1 DOSAGE FORM, QD (AT NIGHT) (STOP DATE: 3 YEARS AGO)
     Route: 048
     Dates: start: 1985

REACTIONS (2)
  - Dementia [Not Recovered/Not Resolved]
  - Blood triglycerides increased [Recovered/Resolved]

NARRATIVE: CASE EVENT DATE: 20200801
